FAERS Safety Report 19498626 (Version 9)
Quarter: 2022Q2

REPORT INFORMATION
  Report Type: Spontaneous
  Country: GB (occurrence: GB)
  Receive Date: 20210706
  Receipt Date: 20220615
  Transmission Date: 20220720
  Serious: Yes (Hospitalization, Other)
  Sender: FDA-Public Use
  Company Number: GB-ROCHE-2225278

PATIENT
  Age: 43 Year
  Sex: Female

DRUGS (59)
  1. DOCETAXEL [Suspect]
     Active Substance: DOCETAXEL
     Indication: Cancer pain
     Dosage: 148 MG, Q3W
     Route: 042
     Dates: start: 20171108, end: 20180131
  2. DOCETAXEL [Suspect]
     Active Substance: DOCETAXEL
     Indication: Breast cancer metastatic
     Dosage: 592 MG
     Route: 042
  3. TRASTUZUMAB [Suspect]
     Active Substance: TRASTUZUMAB
     Indication: Breast cancer metastatic
     Dosage: 882 MG, Q3W
     Route: 042
     Dates: start: 20171108, end: 20171129
  4. TRASTUZUMAB [Suspect]
     Active Substance: TRASTUZUMAB
     Indication: HER2 positive breast cancer
     Dosage: 651 MG, Q3W
     Route: 042
     Dates: start: 20171129, end: 20210903
  5. TRASTUZUMAB [Suspect]
     Active Substance: TRASTUZUMAB
     Dosage: 600 MG, Q3W
     Route: 065
     Dates: start: 20211015
  6. PERTUZUMAB [Suspect]
     Active Substance: PERTUZUMAB
     Indication: Breast cancer metastatic
     Dosage: 840 MG, Q3W
     Route: 042
     Dates: start: 20171129
  7. PERTUZUMAB [Suspect]
     Active Substance: PERTUZUMAB
     Indication: HER2 positive breast cancer
     Dosage: 840 MG, Q3W
     Route: 042
     Dates: start: 20181120
  8. PERTUZUMAB [Suspect]
     Active Substance: PERTUZUMAB
     Indication: Cancer pain
     Dosage: 840 MG, Q3W
     Route: 065
     Dates: start: 20171108
  9. PERTUZUMAB [Suspect]
     Active Substance: PERTUZUMAB
     Dosage: 420 MG, Q3W
     Route: 042
     Dates: start: 20171129
  10. PERTUZUMAB [Suspect]
     Active Substance: PERTUZUMAB
     Dosage: 600 MG, Q3W
     Route: 058
     Dates: start: 20211015
  11. BECLOMETHASONE DIPROPIONATE [Concomitant]
     Active Substance: BECLOMETHASONE DIPROPIONATE
     Dosage: DOSE 2 PUFF, 0.5 DAY
     Route: 055
  12. BECLOMETHASONE DIPROPIONATE [Concomitant]
     Active Substance: BECLOMETHASONE DIPROPIONATE
     Dosage: 1 DF, QD
     Route: 055
  13. BECLOMETHASONE DIPROPIONATE [Concomitant]
     Active Substance: BECLOMETHASONE DIPROPIONATE
     Dosage: 2 OT, QD (DOSE 2 PUFF)
     Route: 055
  14. BECLOMETHASONE DIPROPIONATE [Concomitant]
     Active Substance: BECLOMETHASONE DIPROPIONATE
     Dosage: 2 OT, QD (DOSE 2 PUFF)
     Route: 055
  15. BECLOMETHASONE DIPROPIONATE [Concomitant]
     Active Substance: BECLOMETHASONE DIPROPIONATE
     Dosage: DOSE 2 PUFF; PAIN FROM METASTASES
     Route: 055
  16. BECLOMETHASONE DIPROPIONATE [Concomitant]
     Active Substance: BECLOMETHASONE DIPROPIONATE
     Dosage: 2 PUFF, BID; PAIN FROM METASTASES
     Route: 055
  17. LACTULOSE [Concomitant]
     Active Substance: LACTULOSE
     Indication: Constipation
     Dosage: 10 ML, BID (0.5 DAY)
     Route: 048
  18. LACTULOSE [Concomitant]
     Active Substance: LACTULOSE
     Indication: Cancer pain
     Dosage: 10 ML, BID
     Route: 048
  19. LACTULOSE [Concomitant]
     Active Substance: LACTULOSE
     Indication: Prophylaxis
     Dosage: 10 MILLILITER, BID (0.5 DAY); PAIN FROM METASTASES
     Route: 048
  20. METFORMIN [Concomitant]
     Active Substance: METFORMIN HYDROCHLORIDE
     Indication: Cancer pain
     Dosage: 500 MILLIGRAM, QD; PAIN FROM METASTASES
     Route: 048
  21. METFORMIN [Concomitant]
     Active Substance: METFORMIN HYDROCHLORIDE
     Dosage: 500 MG, QD
     Route: 048
  22. METFORMIN [Concomitant]
     Active Substance: METFORMIN HYDROCHLORIDE
     Dosage: 1000 MG, QD
     Route: 048
  23. MIRTAZAPINE [Concomitant]
     Active Substance: MIRTAZAPINE
     Indication: Cancer pain
     Dosage: 45 MG, QD
     Route: 048
  24. MIRTAZAPINE [Concomitant]
     Active Substance: MIRTAZAPINE
     Indication: Product used for unknown indication
  25. OMEPRAZOLE [Concomitant]
     Active Substance: OMEPRAZOLE
     Indication: Cancer pain
     Dosage: 40 MILLIGRAM, QD; PAIN FROM METASTASES
     Route: 048
     Dates: start: 201710
  26. OMEPRAZOLE [Concomitant]
     Active Substance: OMEPRAZOLE
     Indication: Product used for unknown indication
  27. OXYCODONE [Concomitant]
     Active Substance: OXYCODONE
     Indication: Cancer pain
     Dosage: 110 MG, BID; 110 MG, BID (0.5 DAY)
     Route: 048
  28. OXYCODONE [Concomitant]
     Active Substance: OXYCODONE
     Dosage: 110 MG, BID
     Route: 048
  29. OXYCODONE [Concomitant]
     Active Substance: OXYCODONE
     Dosage: 220 MILLIGRAM, QD; PAIN FROM METASTASES
     Route: 048
  30. QUETIAPINE [Concomitant]
     Active Substance: QUETIAPINE
     Indication: Depressed mood
     Dosage: 150 MG, QD
     Route: 048
     Dates: start: 2020
  31. QUETIAPINE [Concomitant]
     Active Substance: QUETIAPINE
     Indication: Cancer pain
     Dosage: 100 MG, QD
     Route: 048
     Dates: start: 2020
  32. QUETIAPINE [Concomitant]
     Active Substance: QUETIAPINE
     Dosage: 100 MILLIGRAM, QD (DOSAGE FORM: 245); PAIN FROM METASTASES
     Route: 048
     Dates: end: 2020
  33. QUETIAPINE [Concomitant]
     Active Substance: QUETIAPINE
     Dosage: UNK UNK, QD PAIN FROM METASTASES
     Route: 048
     Dates: start: 2020
  34. RAMIPRIL [Concomitant]
     Active Substance: RAMIPRIL
     Indication: Cancer pain
     Dosage: 1.25 MILLIGRAM, QD; PAIN FROM METASTASES
     Route: 048
  35. ALBUTEROL [Concomitant]
     Active Substance: ALBUTEROL
     Indication: Cancer pain
     Dosage: PRN (DOSE 2 PUFF)
     Route: 055
  36. ALBUTEROL [Concomitant]
     Active Substance: ALBUTEROL
     Indication: Product used for unknown indication
     Dosage: DOSE 2 PUFF; PAIN FROM METASTASES
     Route: 055
  37. SIMVASTATIN [Concomitant]
     Active Substance: SIMVASTATIN
     Indication: Cancer pain
     Dosage: 40 MILLIGRAM, QD; PAIN FROM METASTASES
     Route: 048
  38. SODIUM PICOSULFATE [Concomitant]
     Active Substance: SODIUM PICOSULFATE
     Indication: Constipation
     Dosage: 10 MG, QD; 10 MILLIGRAM PER 10 MILLILITRE, QD
     Route: 048
  39. SODIUM PICOSULFATE [Concomitant]
     Active Substance: SODIUM PICOSULFATE
     Indication: Cancer pain
     Dosage: DOSE 10 OTHER (10 MG IN 10 ML)
     Route: 048
  40. CALCIUM CARBONATE\CHOLECALCIFEROL [Concomitant]
     Active Substance: CALCIUM CARBONATE\CHOLECALCIFEROL
     Indication: Cancer pain
     Dosage: 1 DF, PER 0.5 DAY
     Route: 048
  41. CALCIUM CARBONATE\CHOLECALCIFEROL [Concomitant]
     Active Substance: CALCIUM CARBONATE\CHOLECALCIFEROL
     Indication: Product used for unknown indication
     Dosage: 2 DF
     Route: 048
  42. NITROFURANTOIN [Concomitant]
     Active Substance: NITROFURANTOIN
     Indication: Urinary tract infection
     Dosage: 200 MG, QD
     Route: 048
     Dates: start: 20181103, end: 20181109
  43. NITROFURANTOIN [Concomitant]
     Active Substance: NITROFURANTOIN
     Indication: Cancer pain
     Dosage: 50 MG,0.25
     Route: 048
     Dates: start: 20181103, end: 20181109
  44. CHOLECALCIFEROL [Concomitant]
     Active Substance: CHOLECALCIFEROL
     Indication: Product used for unknown indication
     Dosage: 1 DF   0.5 DAY
     Route: 048
  45. CALCIUM CARBONATE [Concomitant]
     Active Substance: CALCIUM CARBONATE
     Indication: Product used for unknown indication
     Dosage: 1 DF, BID
     Route: 048
  46. CALCIUM CARBONATE [Concomitant]
     Active Substance: CALCIUM CARBONATE
     Indication: Cancer pain
     Dosage: 1 DF, QD
     Route: 048
  47. CLONAZEPAM [Concomitant]
     Active Substance: CLONAZEPAM
     Indication: Muscle spasms
     Dosage: 250 MG, QD
     Route: 048
     Dates: start: 2020
  48. CLONAZEPAM [Concomitant]
     Active Substance: CLONAZEPAM
     Indication: Cancer pain
  49. LINEZOLID [Concomitant]
     Active Substance: LINEZOLID
     Indication: Device related infection
     Dosage: 600 MILLIGRAM; PAIN FROM METASTASES
     Route: 048
     Dates: start: 20191125, end: 20191130
  50. LINEZOLID [Concomitant]
     Active Substance: LINEZOLID
     Indication: Cancer pain
     Dosage: UNK
  51. MORPHINE [Concomitant]
     Active Substance: MORPHINE
     Indication: Cancer pain
     Dosage: 5 MG
     Route: 065
     Dates: start: 20181002, end: 20181002
  52. ONDANSETRON [Concomitant]
     Active Substance: ONDANSETRON
     Indication: Cancer pain
     Dosage: 4 MILLIGRAM; PAIN FROM METASTASES
     Route: 065
     Dates: start: 20181002, end: 20181002
  53. BECLOMETHASONE DIPROPIONATE [Concomitant]
     Active Substance: BECLOMETHASONE DIPROPIONATE
     Indication: Cancer pain
     Dosage: 2 PUFF, BID
     Route: 055
  54. BECLOMETHASONE DIPROPIONATE [Concomitant]
     Active Substance: BECLOMETHASONE DIPROPIONATE
     Indication: Cancer pain
     Dosage: 2 OT, QD (DOSE 2 PUFF)
     Route: 055
  55. BECLOMETHASONE DIPROPIONATE [Concomitant]
     Active Substance: BECLOMETHASONE DIPROPIONATE
     Route: 055
  56. BECLOMETHASONE DIPROPIONATE [Concomitant]
     Active Substance: BECLOMETHASONE DIPROPIONATE
     Route: 055
  57. CHOLECALCIFEROL [Concomitant]
     Active Substance: CHOLECALCIFEROL
     Indication: Product used for unknown indication
     Dosage: 1 DF, BID
     Route: 048
  58. ERYTHROMYCIN [Concomitant]
     Active Substance: ERYTHROMYCIN
     Dosage: 500 MG, QD
     Route: 048
     Dates: start: 2020, end: 202007
  59. VANCOMYCIN [Concomitant]
     Active Substance: VANCOMYCIN
     Dosage: 1750 MG, QD
     Route: 042
     Dates: start: 20200612, end: 202006

REACTIONS (13)
  - Muscle spasms [Recovered/Resolved]
  - Device related infection [Recovered/Resolved]
  - Diarrhoea [Recovered/Resolved]
  - Post procedural diarrhoea [Recovered/Resolved]
  - Vomiting [Recovered/Resolved]
  - Nausea [Recovered/Resolved]
  - Abdominal pain [Recovered/Resolved]
  - Muscle spasms [Recovered/Resolved]
  - Off label use [Unknown]
  - Urinary tract infection [Recovered/Resolved]
  - Dizziness [Recovered/Resolved]
  - Headache [Recovered/Resolved]
  - Back pain [Recovered/Resolved with Sequelae]

NARRATIVE: CASE EVENT DATE: 20180904
